FAERS Safety Report 17903714 (Version 3)
Quarter: 2020Q4

REPORT INFORMATION
  Report Type: Spontaneous
  Country: US (occurrence: US)
  Receive Date: 20200617
  Receipt Date: 20201230
  Transmission Date: 20210113
  Serious: Yes (Other)
  Sender: FDA-Public Use
  Company Number: US-TEVA-2020-US-1248325

PATIENT
  Sex: Male

DRUGS (11)
  1. ASPIRIN. [Concomitant]
     Active Substance: ASPIRIN
     Dosage: DOSAGE: 81 MG
  2. AMIODARONE [Concomitant]
     Active Substance: AMIODARONE
     Indication: HYPERTENSION
     Dosage: 5 MG + 10 ML
     Route: 065
  3. VITAMINS [Concomitant]
     Active Substance: VITAMINS
  4. FENOFIBRATE. [Concomitant]
     Active Substance: FENOFIBRATE
     Indication: BLOOD CHOLESTEROL INCREASED
     Dosage: DOSAGE: 145MILLIGRAM
  5. ADULT VITAMINS [Concomitant]
     Dosage: DOSAGE: 1 VITAMIN
     Dates: start: 201801
  6. VITAMIN B12 [Concomitant]
     Active Substance: CYANOCOBALAMIN
     Indication: VITAMIN B12 DEFICIENCY
     Dosage: DOSAGE: 1000 MG
     Dates: start: 201908
  7. VITAMIN C [Concomitant]
     Active Substance: ASCORBIC ACID
     Dosage: DOSAGE: 1000MG
     Dates: start: 201801
  8. LOSARTAN. [Concomitant]
     Active Substance: LOSARTAN
     Indication: HYPERTENSION
     Dosage: DOSAGE: 100MG
     Dates: start: 201808
  9. VITAMIN B COMPLEX [Concomitant]
     Active Substance: CYANOCOBALAMIN\DEXPANTHENOL\NIACINAMIDE\PYRIDOXINE HYDROCHLORIDE\RIBOFLAVIN 5^-PHOSPHATE SODIUM\THIAMINE HYDROCHLORIDE\VITAMIN B COMPLEX
     Dosage: DOSAGE: 1 TABLET
     Dates: start: 201801
  10. VALSARTAN/HYDROCHLOROTHIAZIDE [Suspect]
     Active Substance: HYDROCHLOROTHIAZIDE\VALSARTAN
     Indication: HYPERTENSION
     Dosage: DOSAGE: 320 MG
     Route: 065
     Dates: end: 2018
  11. FOLIC ACID. [Concomitant]
     Active Substance: FOLIC ACID
     Dosage: 800MCG
     Dates: start: 201908

REACTIONS (1)
  - Colon cancer [Unknown]
